FAERS Safety Report 14924392 (Version 1)
Quarter: 2018Q2

REPORT INFORMATION
  Report Type: Spontaneous
  Country: DE (occurrence: DE)
  Receive Date: 20180522
  Receipt Date: 20180522
  Transmission Date: 20180711
  Serious: Yes (Hospitalization)
  Sender: FDA-Public Use
  Company Number: DE-GLAXOSMITHKLINE-DE2018085984

PATIENT
  Age: 53 Year
  Sex: Female
  Weight: 58 kg

DRUGS (1)
  1. SCOPODERM TTS [Suspect]
     Active Substance: SCOPOLAMINE
     Indication: MOTION SICKNESS
     Dosage: 6 PLASTERS, BUT FOR 3 DAYS BUT AFTER THE SECOND PATCH SYMPTOMS WERE ALREADY ON THE BUT
     Route: 065

REACTIONS (7)
  - Nausea [Recovered/Resolved]
  - Dehydration [Recovered/Resolved]
  - Visual impairment [Recovered/Resolved]
  - Cardiovascular disorder [Unknown]
  - Hot flush [Unknown]
  - Vomiting [Recovered/Resolved]
  - Dysgeusia [Unknown]

NARRATIVE: CASE EVENT DATE: 20180417
